FAERS Safety Report 10277032 (Version 1)
Quarter: 2014Q3

REPORT INFORMATION
  Report Type: Spontaneous
  Country: IT (occurrence: None)
  Receive Date: 20140701
  Receipt Date: 20140701
  Transmission Date: 20150326
  Serious: Yes (Hospitalization)
  Sender: FDA-Public Use
  Company Number: NL01PV14.36423

PATIENT
  Age: 61 Year
  Sex: Male

DRUGS (8)
  1. VASORETIC [Suspect]
     Active Substance: ENALAPRIL MALEATE\HYDROCHLOROTHIAZIDE
     Indication: DRUG ABUSE
     Dosage: 227.5 MILLIGRAM DAILY; 1 DOSAGE FORM = ENALAPRIL MALEATE 20 MG + HYDROCHLOROTHIZIDE 12.5 MG, ORAL
     Route: 048
     Dates: start: 20140423, end: 20140423
  2. METFORMIN [Suspect]
     Active Substance: METFORMIN HYDROCHLORIDE
     Indication: DRUG ABUSE
     Route: 048
     Dates: start: 20140423, end: 20140423
  3. LANSOPRAZOLE. [Suspect]
     Active Substance: LANSOPRAZOLE
     Indication: DRUG ABUSE
     Route: 048
     Dates: start: 20140423, end: 20140423
  4. LAMIVUDINE. [Suspect]
     Active Substance: LAMIVUDINE
     Indication: DRUG ABUSE
     Dosage: 140 MG, SINGLE, ORAL
     Route: 048
     Dates: start: 20140423, end: 20140423
  5. SIMVASTATIN. [Suspect]
     Active Substance: SIMVASTATIN
     Indication: DRUG ABUSE
     Route: 048
     Dates: start: 20140423, end: 20140423
  6. ZOLPIDEM [Suspect]
     Active Substance: ZOLPIDEM\ZOLPIDEM TARTRATE
     Dosage: 50 MG, SINGLE, ORAL
     Route: 048
     Dates: start: 20140423, end: 20140423
  7. CITALOPRAM [Suspect]
     Active Substance: CITALOPRAM HYDROBROMIDE
     Indication: DRUG ABUSE
     Route: 048
     Dates: start: 20140423, end: 20140423
  8. AMISULPRIDE [Suspect]
     Active Substance: AMISULPRIDE
     Indication: DRUG ABUSE
     Route: 048
     Dates: start: 20140423, end: 20140423

REACTIONS (7)
  - Depressed level of consciousness [None]
  - Conduction disorder [None]
  - Intentional self-injury [None]
  - Hypotension [None]
  - Sopor [None]
  - Metabolic acidosis [None]
  - Drug abuse [None]

NARRATIVE: CASE EVENT DATE: 20140423
